FAERS Safety Report 5992836-0 (Version None)
Quarter: 2008Q4

REPORT INFORMATION
  Report Type: 
  Country: None (occurrence: None)
  Receive Date: 20081212
  Receipt Date: 20081204
  Transmission Date: 20090506
  Serious: Yes (Other)
  Sender: FDA-Public Use
  Company Number: JP-BAYER-200813002BYL

PATIENT
  Age: 57 Year
  Sex: Male

DRUGS (2)
  1. BETAFERON [Suspect]
     Indication: MULTIPLE SCLEROSIS
     Dosage: UNIT DOSE: 9.6 MIU
     Route: 058
     Dates: start: 20050101
  2. STEROID PULSE [Concomitant]
     Indication: MULTIPLE SCLEROSIS
     Route: 065
     Dates: start: 20081001

REACTIONS (1)
  - CEREBRAL INFARCTION [None]
